FAERS Safety Report 7234922-3 (Version None)
Quarter: 2011Q1

REPORT INFORMATION
  Report Type: 
  Country: None (occurrence: None)
  Receive Date: 20110120
  Receipt Date: 20110110
  Transmission Date: 20110831
  Serious: Yes (Disabling, Other)
  Sender: FDA-Public Use
  Company Number: US-JNJFOC-20110102904

PATIENT
  Sex: Male
  Weight: 95.26 kg

DRUGS (6)
  1. FLONASE [Concomitant]
     Indication: MULTIPLE ALLERGIES
     Dosage: 50 MG SOLUTION.  ONE SQUIRT AS NEEDED / INTRANASAL.
     Route: 045
  2. ALLEGRA [Concomitant]
     Indication: MULTIPLE ALLERGIES
     Route: 048
  3. LISINOPRIL [Concomitant]
     Indication: BLOOD PRESSURE
     Route: 048
  4. LEFLUNOMIDE [Concomitant]
     Indication: RHEUMATOID ARTHRITIS
     Route: 048
  5. SIMPONI [Suspect]
     Indication: RHEUMATOID ARTHRITIS
     Route: 058
  6. METOPROLOL [Concomitant]
     Indication: BLOOD PRESSURE
     Route: 048

REACTIONS (1)
  - DEAFNESS [None]
